FAERS Safety Report 11220402 (Version 1)
Quarter: 2015Q2

REPORT INFORMATION
  Report Type: Spontaneous
  Country: US (occurrence: None)
  Receive Date: 20150625
  Receipt Date: 20150625
  Transmission Date: 20150821
  Serious: No
  Sender: FDA-Public Use
  Company Number: None

PATIENT
  Age: 62 Year
  Sex: Female

DRUGS (1)
  1. COPAXONE [Suspect]
     Active Substance: GLATIRAMER ACETATE
     Indication: MULTIPLE SCLEROSIS
     Dosage: 20 MG, DAILY, SUB-Q
     Route: 058
     Dates: start: 20121226, end: 20150607

REACTIONS (7)
  - Muscle spasms [None]
  - Chest discomfort [None]
  - Burning sensation [None]
  - Erythema [None]
  - Flushing [None]
  - Dyspnoea [None]
  - Throat tightness [None]

NARRATIVE: CASE EVENT DATE: 20150607
